FAERS Safety Report 16767164 (Version 2)
Quarter: 2019Q3

REPORT INFORMATION
  Report Type: Spontaneous
  Country: US (occurrence: US)
  Receive Date: 20190903
  Receipt Date: 20190926
  Transmission Date: 20191005
  Serious: No
  Sender: FDA-Public Use
  Company Number: US-PFIZER INC-2019374987

PATIENT
  Age: 56 Year
  Sex: Female
  Weight: 98.37 kg

DRUGS (13)
  1. REMICADE [Suspect]
     Active Substance: INFLIXIMAB
     Indication: RHEUMATOID ARTHRITIS
     Dosage: UNK
  2. CYMBALTA [Concomitant]
     Active Substance: DULOXETINE HYDROCHLORIDE
     Dosage: 60 MG, 1X/DAY
     Route: 048
  3. FOLIC ACID. [Concomitant]
     Active Substance: FOLIC ACID
     Dosage: 1 MG, DAILY
     Route: 048
  4. NORCO [Concomitant]
     Active Substance: ACETAMINOPHEN\HYDROCODONE BITARTRATE
     Dosage: UNK UNK, AS NEEDED (HYDROCODONE BITARTRATE 10MG; PARACETAMOL 325 MG; 2 TIMES A DAY)
     Route: 048
  5. TNF [Suspect]
     Active Substance: UNSPECIFIED INGREDIENT
     Indication: RHEUMATOID ARTHRITIS
     Dosage: UNK
  6. PRODRIN [Concomitant]
     Active Substance: ACETAMINOPHEN\CAFFEINE\ISOMETHEPTENE MUCATE
     Indication: HEADACHE
     Dosage: 1 DF, AS NEEDED (TAKE 1 TABLET EVERY 30 MINS PRN HEADACHE. MAX 5 TABLETS PER DAY)
     Route: 048
  7. HYDROCHLOROTHIAZIDE. [Concomitant]
     Active Substance: HYDROCHLOROTHIAZIDE
     Dosage: 25 MG, 1X/DAY
     Route: 048
  8. GLUCOPHAGE [Concomitant]
     Active Substance: METFORMIN HYDROCHLORIDE
     Dosage: 500 MG, 2X/DAY
     Route: 048
  9. ACTEMRA [Concomitant]
     Active Substance: TOCILIZUMAB
     Dosage: UNK (162 MG/0.9 ML)
     Route: 058
  10. XELJANZ [Suspect]
     Active Substance: TOFACITINIB CITRATE
     Indication: RHEUMATOID ARTHRITIS
     Dosage: 5 MG, 2X/DAY (X60)
     Route: 048
     Dates: start: 20190404, end: 20190821
  11. ENBREL [Suspect]
     Active Substance: ETANERCEPT
     Indication: RHEUMATOID ARTHRITIS
     Dosage: UNK
  12. HUMIRA [Suspect]
     Active Substance: ADALIMUMAB
     Indication: RHEUMATOID ARTHRITIS
     Dosage: UNK
  13. METHOTREXATE. [Concomitant]
     Active Substance: METHOTREXATE
     Dosage: 15 MG, WEEKLY
     Route: 058

REACTIONS (2)
  - Drug ineffective [Unknown]
  - Condition aggravated [Unknown]
